FAERS Safety Report 12992454 (Version 2)
Quarter: 2017Q1

REPORT INFORMATION
  Report Type: Report from Study
  Country: AR (occurrence: AR)
  Receive Date: 20161202
  Receipt Date: 20170202
  Transmission Date: 20170428
  Serious: Yes (Death, Life-Threatening, Hospitalization)
  Sender: FDA-Public Use
  Company Number: PHHY2014AR043522

PATIENT
  Age: 60 Year
  Sex: Male
  Weight: 77.8 kg

DRUGS (4)
  1. PREDNISONE. [Concomitant]
     Active Substance: PREDNISONE
     Indication: PROPHYLAXIS AGAINST TRANSPLANT REJECTION
     Dosage: 20 MG, UNK
     Route: 030
     Dates: start: 20131229
  2. MYFORTIC [Suspect]
     Active Substance: MYCOPHENOLATE SODIUM
     Indication: RENAL TRANSPLANT
     Dosage: 1440 MG, QD
     Route: 048
     Dates: start: 20130426
  3. IBUPROFEN. [Concomitant]
     Active Substance: IBUPROFEN
     Indication: HEADACHE
     Dosage: 1600 MG, UNK
  4. MYFORTIC [Suspect]
     Active Substance: MYCOPHENOLATE SODIUM
     Indication: LUPUS NEPHRITIS
     Dosage: 360 MG, Q12H
     Route: 048
     Dates: start: 20130429

REACTIONS (11)
  - White blood cell count decreased [Unknown]
  - Intestinal perforation [Recovered/Resolved]
  - Subarachnoid haemorrhage [Fatal]
  - Hypertensive crisis [Recovering/Resolving]
  - Sensory loss [Fatal]
  - Urinary tract infection [Recovering/Resolving]
  - Headache [Fatal]
  - Pulmonary oedema [Recovering/Resolving]
  - Blood creatinine increased [Recovering/Resolving]
  - Haematocrit decreased [Unknown]
  - Leukocytosis [Unknown]

NARRATIVE: CASE EVENT DATE: 20130430
